FAERS Safety Report 20253453 (Version 2)
Quarter: 2022Q1

REPORT INFORMATION
  Report Type: Spontaneous
  Country: DE (occurrence: DE)
  Receive Date: 20211230
  Receipt Date: 20220103
  Transmission Date: 20220424
  Serious: Yes (Life-Threatening, Hospitalization)
  Sender: FDA-Public Use
  Company Number: DE-BAUSCH-BL-2021-042369

PATIENT
  Age: 16 Year
  Sex: Female

DRUGS (15)
  1. METRONIDAZOLE [Suspect]
     Active Substance: METRONIDAZOLE
     Indication: Antibiotic therapy
     Dosage: FROM ADMISSION DAY 1-2
     Route: 065
  2. METRONIDAZOLE [Suspect]
     Active Substance: METRONIDAZOLE
     Dosage: FROM ADMISSION DAY 29-38
     Route: 065
  3. CLINDAMYCIN [Suspect]
     Active Substance: CLINDAMYCIN
     Indication: Antibiotic therapy
     Dosage: FROM ADMISSION DAY 20-24
     Route: 065
  4. CLINDAMYCIN [Suspect]
     Active Substance: CLINDAMYCIN
     Dosage: ADMISSION DAY 28-39
     Route: 065
  5. CLINDAMYCIN [Suspect]
     Active Substance: CLINDAMYCIN
     Dosage: ADMISSION DAY 41-43
     Route: 065
  6. METAMIZOLE [Suspect]
     Active Substance: METAMIZOLE
     Indication: Procedural pain
     Dosage: FROM ADMISSION DAY 1-4
     Route: 042
  7. METAMIZOLE [Suspect]
     Active Substance: METAMIZOLE
     Dosage: FROM ADMISSION DAY 29-36
     Route: 042
  8. METAMIZOLE [Suspect]
     Active Substance: METAMIZOLE
     Dosage: FROM ADMISSION DAY 38
     Route: 042
  9. METAMIZOLE [Suspect]
     Active Substance: METAMIZOLE
     Dosage: FROM ADMISSION DAY 42-43
     Route: 042
  10. MEROPENEM [Suspect]
     Active Substance: MEROPENEM
     Indication: Antibiotic therapy
     Dosage: FROM ADMISSION DAY 20-24
     Route: 065
  11. MEROPENEM [Suspect]
     Active Substance: MEROPENEM
     Dosage: FROM ADMISSION DAY 28-39
     Route: 065
  12. MEROPENEM [Suspect]
     Active Substance: MEROPENEM
     Dosage: FROM ADMISSION DAY 41-43
     Route: 065
  13. SULFAMETHOXAZOLE\TRIMETHOPRIM [Suspect]
     Active Substance: SULFAMETHOXAZOLE\TRIMETHOPRIM
     Indication: Antibiotic therapy
     Dosage: FROM ADMISSION DAY 20-22
     Route: 065
  14. CEFOTAXIME [Suspect]
     Active Substance: CEFOTAXIME SODIUM
     Indication: Antibiotic therapy
     Dosage: FROM ADMISSION DAY 1-20
     Route: 065
  15. VANCOMYCIN [Suspect]
     Active Substance: VANCOMYCIN
     Indication: Antibiotic therapy
     Dosage: FROM ADMISSION DAY 1-20
     Route: 065

REACTIONS (1)
  - Agranulocytosis [Recovered/Resolved]
